FAERS Safety Report 20592832 (Version 2)
Quarter: 2022Q2

REPORT INFORMATION
  Report Type: Spontaneous
  Country: US (occurrence: US)
  Receive Date: 20220315
  Receipt Date: 20220611
  Transmission Date: 20220721
  Serious: Yes (Other)
  Sender: FDA-Public Use
  Company Number: US-JNJFOC-20220320645

PATIENT
  Sex: Male

DRUGS (4)
  1. ZYTIGA [Suspect]
     Active Substance: ABIRATERONE ACETATE
     Indication: Product used for unknown indication
     Dosage: HAD ALREADY THROWN BOTTLE AWAY
     Route: 048
     Dates: start: 20220201, end: 20220415
  2. ZYTIGA [Suspect]
     Active Substance: ABIRATERONE ACETATE
     Route: 048
     Dates: start: 20220510
  3. KEPPRA [Concomitant]
     Active Substance: LEVETIRACETAM
     Indication: Brain tumour operation
     Route: 065
     Dates: start: 201205
  4. TAMSULOSIN [Concomitant]
     Active Substance: TAMSULOSIN
     Indication: Urine flow decreased
     Route: 065
     Dates: start: 202004

REACTIONS (2)
  - Syncope [Unknown]
  - Malaise [Unknown]
